FAERS Safety Report 4682129-6 (Version None)
Quarter: 2005Q2

REPORT INFORMATION
  Report Type: 
  Country: None (occurrence: None)
  Receive Date: 20050602
  Receipt Date: 20050524
  Transmission Date: 20051028
  Serious: Yes (Other)
  Sender: FDA-Public Use
  Company Number: 2005-05-1568

PATIENT
  Age: 73 Year
  Sex: Male

DRUGS (2)
  1. VIRAFERONPEG [Suspect]
     Indication: HEPATITIS C
     Dosage: SUBCUTANEOUS
     Route: 058
  2. REBETOL [Suspect]
     Indication: HEPATITIS C
     Dosage: ORAL
     Route: 048

REACTIONS (2)
  - LUNG DISORDER [None]
  - PULMONARY FIBROSIS [None]
